FAERS Safety Report 25311267 (Version 1)
Quarter: 2025Q2

REPORT INFORMATION
  Report Type: Spontaneous
  Country: JP (occurrence: JP)
  Receive Date: 20250514
  Receipt Date: 20250514
  Transmission Date: 20250717
  Serious: Yes (Death, Other)
  Sender: JOHNSON AND JOHNSON
  Company Number: JP-JNJFOC-20250516601

PATIENT
  Age: 8 Decade
  Sex: Male

DRUGS (3)
  1. RYBREVANT [Suspect]
     Active Substance: AMIVANTAMAB-VMJW
     Indication: Lung neoplasm malignant
     Route: 041
     Dates: start: 20250501, end: 20250501
  2. RYBREVANT [Suspect]
     Active Substance: AMIVANTAMAB-VMJW
     Route: 041
     Dates: start: 20250502, end: 20250502
  3. RYBREVANT [Suspect]
     Active Substance: AMIVANTAMAB-VMJW
     Dosage: DAY8
     Route: 041
     Dates: start: 20250508, end: 20250508

REACTIONS (3)
  - Neutrophil count decreased [Fatal]
  - Myelosuppression [Unknown]
  - Nausea [Unknown]

NARRATIVE: CASE EVENT DATE: 20250501
